FAERS Safety Report 14331343 (Version 1)
Quarter: 2017Q4

REPORT INFORMATION
  Report Type: Spontaneous
  Country: IT (occurrence: IT)
  Receive Date: 20171228
  Receipt Date: 20171228
  Transmission Date: 20180321
  Serious: Yes (Other)
  Sender: FDA-Public Use
  Company Number: IT-CIPLA LTD.-2017IT24945

PATIENT

DRUGS (5)
  1. GABAPENTIN. [Suspect]
     Active Substance: GABAPENTIN
     Dosage: 100 MG, UNK, IN TOTAL
     Route: 048
     Dates: start: 20170920, end: 20170920
  2. RISPERIDONE. [Suspect]
     Active Substance: RISPERIDONE
     Dosage: 1 MG, UNK, IN TOTAL
     Route: 048
     Dates: start: 20170920, end: 20170920
  3. ALCOVER [Suspect]
     Active Substance: SODIUM OXYBATE
     Dosage: 3 DF, UNK, IN TOTAL
     Route: 048
     Dates: start: 20170920, end: 20170920
  4. LIBRIUM [Suspect]
     Active Substance: CHLORDIAZEPOXIDE HYDROCHLORIDE
     Dosage: 20 MG, UNK, IN TOTAL
     Route: 048
     Dates: start: 20170920, end: 20170920
  5. DIAZEPAM. [Suspect]
     Active Substance: DIAZEPAM
     Dosage: 30 MG, UNK, IN TOTAL
     Route: 048
     Dates: start: 20170920, end: 20170920

REACTIONS (3)
  - Drug abuse [Unknown]
  - Alcohol abuse [Unknown]
  - Asthenia [Unknown]

NARRATIVE: CASE EVENT DATE: 20170920
